FAERS Safety Report 4562633-1 (Version None)
Quarter: 2005Q1

REPORT INFORMATION
  Report Type: 
  Country: None (occurrence: None)
  Receive Date: 20050124
  Receipt Date: 20050113
  Transmission Date: 20050727
  Serious: Yes (Other)
  Sender: FDA-Public Use
  Company Number: HQWYE201516JUL04

PATIENT
  Age: 69 Year
  Sex: Female

DRUGS (1)
  1. PREMPRO [Suspect]
     Dosage: UNSPECIFIED, ORAL
     Route: 048
     Dates: start: 20001009, end: 20020201

REACTIONS (4)
  - CEREBROVASCULAR ACCIDENT [None]
  - DEEP VEIN THROMBOSIS [None]
  - PULMONARY EMBOLISM [None]
  - RENAL CELL CARCINOMA STAGE UNSPECIFIED [None]
